FAERS Safety Report 13526218 (Version 1)
Quarter: 2017Q2

REPORT INFORMATION
  Report Type: Spontaneous
  Country: ES (occurrence: ES)
  Receive Date: 20170509
  Receipt Date: 20170509
  Transmission Date: 20170830
  Serious: Yes (Life-Threatening, Other)
  Sender: FDA-Public Use
  Company Number: ES-SUN PHARMACEUTICAL INDUSTRIES LTD-2017R1-139904

PATIENT
  Age: 68 Year
  Sex: Male

DRUGS (2)
  1. SPIRONOLACTONE/FUROSEMIDE [Suspect]
     Active Substance: FUROSEMIDE\SPIRONOLACTONE
     Dosage: UNK
     Route: 065
  2. SPIRONOLACTONE/FUROSEMIDE [Suspect]
     Active Substance: FUROSEMIDE\SPIRONOLACTONE
     Indication: HEPATIC HYDROTHORAX
     Dosage: PROGRESSIVELY INCREASED
     Route: 065

REACTIONS (4)
  - Drug ineffective [Unknown]
  - Pleural effusion [None]
  - Renal impairment [None]
  - Disease recurrence [None]
